FAERS Safety Report 11866815 (Version 3)
Quarter: 2016Q1

REPORT INFORMATION
  Report Type: Report from Study
  Country: US (occurrence: US)
  Receive Date: 20151224
  Receipt Date: 20160328
  Transmission Date: 20160526
  Serious: Yes (Other)
  Sender: FDA-Public Use
  Company Number: US-AMGEN-USASL2015136257

PATIENT
  Age: 57 Year
  Sex: Male

DRUGS (1)
  1. ENBREL [Suspect]
     Active Substance: ETANERCEPT
     Indication: RHEUMATOID ARTHRITIS
     Dosage: 50 MG, QWK
     Route: 065
     Dates: start: 20140925

REACTIONS (8)
  - Cyst removal [Unknown]
  - Back pain [Unknown]
  - Type 2 diabetes mellitus [Unknown]
  - Staphylococcal infection [Unknown]
  - Lower respiratory tract infection [Unknown]
  - Skin cancer [Unknown]
  - Dry throat [Unknown]
  - Nasal dryness [Unknown]

NARRATIVE: CASE EVENT DATE: 2015
